FAERS Safety Report 6555998-2 (Version None)
Quarter: 2010Q1

REPORT INFORMATION
  Report Type: 
  Country: None (occurrence: None)
  Receive Date: 20100128
  Receipt Date: 20090130
  Transmission Date: 20100710
  Serious: Yes (Other)
  Sender: FDA-Public Use
  Company Number: US-TEVA-182742USA

PATIENT
  Sex: Female

DRUGS (8)
  1. COPAXONE [Suspect]
     Indication: MULTIPLE SCLEROSIS
     Route: 058
     Dates: start: 20050613
  2. LEVOTHYROXINE SODIUM [Concomitant]
  3. ZYRTEC [Concomitant]
  4. DOCUSATE [Concomitant]
  5. PROZAC [Concomitant]
  6. BCP (BIRTH CONTROL PILL) [Concomitant]
  7. ALBUTEROL [Concomitant]
  8. MULTI-VITAMIN [Concomitant]

REACTIONS (4)
  - INJECTION SITE ERYTHEMA [None]
  - INJECTION SITE NECROSIS [None]
  - INJECTION SITE PAIN [None]
  - INJECTION SITE REACTION [None]
